FAERS Safety Report 23763139 (Version 3)
Quarter: 2024Q3

REPORT INFORMATION
  Report Type: Report from Study
  Country: US (occurrence: US)
  Receive Date: 20240419
  Receipt Date: 20240828
  Transmission Date: 20241016
  Serious: Yes (Hospitalization, Other)
  Sender: TEVA
  Company Number: US-TEVA-VS-3184266

PATIENT
  Age: 47 Year
  Sex: Female
  Weight: 89.6 kg

DRUGS (4)
  1. SPRINTEC [Suspect]
     Active Substance: ETHINYL ESTRADIOL\NORGESTIMATE
     Indication: Drug interaction
     Dosage: DOSE: 0.25 MG/0.035 MG, EVERY MORNING
     Route: 048
     Dates: start: 20240129, end: 20240223
  2. ONDANSETRON [Concomitant]
     Active Substance: ONDANSETRON
     Indication: Nausea
     Dates: start: 20240229
  3. DILAUDID [Concomitant]
     Active Substance: HYDROMORPHONE HYDROCHLORIDE
     Indication: Intervertebral disc protrusion
     Route: 042
     Dates: start: 20240229, end: 20240229
  4. LONAFARNIB [Suspect]
     Active Substance: LONAFARNIB
     Indication: Drug interaction
     Route: 065

REACTIONS (1)
  - Intervertebral disc protrusion [Recovered/Resolved]

NARRATIVE: CASE EVENT DATE: 20240222
